FAERS Safety Report 10657237 (Version 1)
Quarter: 2014Q4

REPORT INFORMATION
  Report Type: Spontaneous
  Country: IT (occurrence: None)
  Receive Date: 20141215
  Receipt Date: 20141215
  Transmission Date: 20150529
  Serious: Yes (Hospitalization)
  Sender: FDA-Public Use
  Company Number: IT-2014VAL000631

PATIENT
  Age: 64 Year
  Sex: Female

DRUGS (3)
  1. CARBAMAZEPINE. [Suspect]
     Active Substance: CARBAMAZEPINE
     Indication: SEIZURE
  2. CEFIXIME. [Suspect]
     Active Substance: CEFIXIME
     Indication: RESPIRATORY TRACT INFECTION
  3. LEVETIRACETAM (LEVETIRACETAM) [Concomitant]
     Active Substance: LEVETIRACETAM

REACTIONS (5)
  - Drug ineffective [None]
  - Status epilepticus [None]
  - Respiratory tract infection [None]
  - Drug interaction [None]
  - Treatment noncompliance [None]
